FAERS Safety Report 23992366 (Version 1)
Quarter: 2024Q2

REPORT INFORMATION
  Report Type: Spontaneous
  Country: US (occurrence: US)
  Receive Date: 20240620
  Receipt Date: 20240620
  Transmission Date: 20240716
  Serious: Yes (Other)
  Sender: FDA-Public Use
  Company Number: US-BRISTOL-MYERS SQUIBB COMPANY-2024-097626

PATIENT
  Age: 60 Year
  Sex: Male
  Weight: 79.83 kg

DRUGS (1)
  1. LENALIDOMIDE [Suspect]
     Active Substance: LENALIDOMIDE
     Indication: Plasma cell myeloma in remission
     Dosage: D 1-21 Q 28 DAYS
     Route: 048
     Dates: start: 20221218

REACTIONS (2)
  - Drug ineffective [Unknown]
  - Plasma cell myeloma recurrent [Unknown]
